FAERS Safety Report 5163800-9 (Version None)
Quarter: 2006Q4

REPORT INFORMATION
  Report Type: 
  Country: None (occurrence: None)
  Receive Date: 20061124
  Receipt Date: 20061114
  Transmission Date: 20070319
  Serious: Yes (Other)
  Sender: FDA-Public Use
  Company Number: 2006143583

PATIENT
  Age: 68 Year
  Sex: Male
  Weight: 74.8435 kg

DRUGS (8)
  1. CHANTIX [Suspect]
     Indication: SMOKING CESSATION THERAPY
     Dates: start: 20060801
  2. MEDROL [Suspect]
     Indication: UPPER RESPIRATORY TRACT INFECTION
     Dates: start: 20060801
  3. ANTIBIOTICS (ANTIBIOTICS) [Suspect]
     Indication: UPPER RESPIRATORY TRACT INFECTION
     Dates: start: 20060801
  4. TRAZODONE HCL [Concomitant]
  5. PRAVACHOL [Concomitant]
  6. PROTONIX [Concomitant]
  7. PERCOCET [Concomitant]
  8. ADVAIR DISKUS 100/50 [Concomitant]

REACTIONS (7)
  - CALCINOSIS [None]
  - DRUG INTERACTION [None]
  - GAIT DISTURBANCE [None]
  - INCORRECT DOSE ADMINISTERED [None]
  - LUNG DISORDER [None]
  - MUSCULAR WEAKNESS [None]
  - UPPER RESPIRATORY TRACT INFECTION [None]
